FAERS Safety Report 6011844-7 (Version None)
Quarter: 2008Q4

REPORT INFORMATION
  Report Type: 
  Country: None (occurrence: None)
  Receive Date: 20081218
  Receipt Date: 20081208
  Transmission Date: 20090506
  Serious: Yes (Hospitalization)
  Sender: FDA-Public Use
  Company Number: JP-SANOFI-SYNTHELABO-F01200801327

PATIENT
  Sex: Female
  Weight: 50 kg

DRUGS (4)
  1. DEPAS [Concomitant]
     Route: 048
     Dates: start: 20070816
  2. DOGMATYL [Concomitant]
     Route: 048
     Dates: start: 20050110
  3. SERMION [Concomitant]
     Route: 048
     Dates: start: 20000427
  4. CLOPIDOGREL [Suspect]
     Indication: CEREBRAL ISCHAEMIA
     Route: 048
     Dates: start: 20070629

REACTIONS (1)
  - CEREBRAL CIRCULATORY FAILURE [None]
